FAERS Safety Report 15157719 (Version 3)
Quarter: 2018Q4

REPORT INFORMATION
  Report Type: Spontaneous
  Country: US (occurrence: US)
  Receive Date: 20180718
  Receipt Date: 20181018
  Transmission Date: 20190204
  Serious: No
  Sender: FDA-Public Use
  Company Number: US-PFIZER INC-2018289266

PATIENT
  Age: 63 Year
  Sex: Male

DRUGS (1)
  1. DOXAZOSIN MESILATE [Suspect]
     Active Substance: DOXAZOSIN MESYLATE
     Dosage: UNK

REACTIONS (3)
  - Drug intolerance [Unknown]
  - Dizziness [Unknown]
  - Drug hypersensitivity [Unknown]
